FAERS Safety Report 12314084 (Version 2)
Quarter: 2016Q2

REPORT INFORMATION
  Report Type: Spontaneous
  Country: JP (occurrence: JP)
  Receive Date: 20160428
  Receipt Date: 20160502
  Transmission Date: 20160815
  Serious: Yes (Death)
  Sender: FDA-Public Use
  Company Number: JP-EISAI MEDICAL RESEARCH-EC-2016-015508

PATIENT
  Age: 17 Year
  Sex: Female

DRUGS (1)
  1. HALAVEN [Suspect]
     Active Substance: ERIBULIN MESYLATE
     Indication: EMBRYONAL RHABDOMYOSARCOMA
     Route: 041
     Dates: start: 20160301, end: 20160301

REACTIONS (4)
  - Malignant neoplasm progression [Fatal]
  - Neutropenia [Unknown]
  - Leukopenia [Recovered/Resolved]
  - Device related infection [Unknown]

NARRATIVE: CASE EVENT DATE: 20160304
